FAERS Safety Report 4396025-5 (Version None)
Quarter: 2004Q2

REPORT INFORMATION
  Report Type: 
  Country: None (occurrence: None)
  Receive Date: 20040621
  Receipt Date: 20031117
  Transmission Date: 20050107
  Serious: Yes (Death)
  Sender: FDA-Public Use
  Company Number: USA-2003-0010833

PATIENT
  Age: 54 Year
  Sex: Female
  Weight: 58 kg

DRUGS (4)
  1. OXYCODONE HCL [Suspect]
  2. COCAINE (COCAINE) [Suspect]
  3. ACETAMINOPHEN [Suspect]
  4. DILTIAZEM [Suspect]

REACTIONS (1)
  - ACCIDENTAL OVERDOSE [None]
